FAERS Safety Report 16343295 (Version 1)
Quarter: 2019Q2

REPORT INFORMATION
  Report Type: Spontaneous
  Country: JP (occurrence: JP)
  Receive Date: 20190522
  Receipt Date: 20190522
  Transmission Date: 20190711
  Serious: Yes (Death)
  Sender: FDA-Public Use
  Company Number: JP-BAYER-2019-096005

PATIENT
  Age: 84 Year
  Sex: Male

DRUGS (2)
  1. ADEMPAS [Suspect]
     Active Substance: RIOCIGUAT
     Indication: PULMONARY HYPERTENSION
     Route: 048
  2. MACITENTAN [Concomitant]
     Active Substance: MACITENTAN

REACTIONS (2)
  - Subarachnoid haemorrhage [Fatal]
  - Pneumonia [Fatal]
